FAERS Safety Report 13155755 (Version 1)
Quarter: 2017Q1

REPORT INFORMATION
  Report Type: Not Available
  Country: None (occurrence: US)
  Receive Date: 20170126
  Receipt Date: 20170126
  Transmission Date: 20170428
  Serious: No
  Sender: FDA-Public Use
  Company Number: US-AKORN-29997

PATIENT
  Sex: Female

DRUGS (1)
  1. CLOBETASOL PROPIONATE TOPICAL SOLUTION, USP, 0.05% [Suspect]
     Active Substance: CLOBETASOL PROPIONATE

REACTIONS (1)
  - Dysgeusia [None]
